FAERS Safety Report 25390838 (Version 1)
Quarter: 2025Q2

REPORT INFORMATION
  Report Type: Report from Study
  Country: TH (occurrence: TH)
  Receive Date: 20250603
  Receipt Date: 20250603
  Transmission Date: 20250716
  Serious: Yes (Other)
  Sender: BAYER HEALTHCARE PHARMACEUTICALS INC.
  Company Number: TH-BAYER-2025A070494

PATIENT
  Age: 76 Year
  Sex: Male

DRUGS (1)
  1. STIVARGA [Suspect]
     Active Substance: REGORAFENIB MONOHYDRATE
     Indication: Colorectal cancer
     Dosage: 80 MG, QD
     Route: 048
     Dates: start: 20250206, end: 20250515

REACTIONS (4)
  - Hepatomegaly [Unknown]
  - Intra-abdominal fluid collection [Unknown]
  - Abdominal distension [Unknown]
  - Product use issue [None]

NARRATIVE: CASE EVENT DATE: 20250101
